FAERS Safety Report 4682301-5 (Version None)
Quarter: 2005Q2

REPORT INFORMATION
  Report Type: 
  Country: None (occurrence: None)
  Receive Date: 20050606
  Receipt Date: 20050523
  Transmission Date: 20051028
  Serious: Yes (Hospitalization)
  Sender: FDA-Public Use
  Company Number: US-JNJFOC-20050303325

PATIENT
  Sex: Female
  Weight: 106.14 kg

DRUGS (4)
  1. NATRECOR [Suspect]
     Dosage: INFUSION
     Route: 042
  2. NATRECOR [Suspect]
     Dosage: BOLUS
     Route: 042
  3. TUMS [Concomitant]
     Route: 049
  4. TUMS [Concomitant]
     Route: 049

REACTIONS (5)
  - ASTHMA [None]
  - BLOOD PRESSURE INCREASED [None]
  - BLOOD UREA INCREASED [None]
  - HYPOCALCAEMIA [None]
  - INFLUENZA [None]
